FAERS Safety Report 6649111-0 (Version None)
Quarter: 2010Q1

REPORT INFORMATION
  Report Type: 
  Country: None (occurrence: None)
  Receive Date: 20100324
  Receipt Date: 20100315
  Transmission Date: 20100710
  Serious: Yes (Other)
  Sender: FDA-Public Use
  Company Number: DK-JNJFOC-20100303850

PATIENT
  Sex: Female

DRUGS (4)
  1. RISPERDAL [Suspect]
     Indication: SCHIZOPHRENIA, PARANOID TYPE
  2. RISPERDAL [Suspect]
  3. CITALOPRAM HYDROBROMIDE [Concomitant]
     Indication: AVERSION
  4. CITALOPRAM HYDROBROMIDE [Concomitant]
     Indication: DEPRESSED MOOD

REACTIONS (2)
  - AKATHISIA [None]
  - HYPERREFLEXIA [None]
